FAERS Safety Report 26075622 (Version 1)
Quarter: 2025Q4

REPORT INFORMATION
  Report Type: Spontaneous
  Country: EU (occurrence: EU)
  Receive Date: 20251121
  Receipt Date: 20251121
  Transmission Date: 20260117
  Serious: Yes (Other)
  Sender: ELI LILLY AND COMPANY
  Company Number: EU-ELI_LILLY_AND_COMPANY-FR202511020555

PATIENT
  Age: 72 Year
  Sex: Male

DRUGS (3)
  1. GEMCITABINE HYDROCHLORIDE [Suspect]
     Active Substance: GEMCITABINE HYDROCHLORIDE
     Indication: Adenocarcinoma pancreas
     Dosage: 1660 MG, WEEKLY (1/W)
     Route: 042
     Dates: start: 20250821
  2. GEMCITABINE HYDROCHLORIDE [Suspect]
     Active Substance: GEMCITABINE HYDROCHLORIDE
     Dosage: 1660 MG, WEEKLY (1/W)
     Route: 042
     Dates: start: 20250828
  3. PACLITAXEL [Suspect]
     Active Substance: PACLITAXEL
     Indication: Adenocarcinoma pancreas
     Dosage: 142.5 MG, UNKNOWN
     Route: 065
     Dates: start: 20250828

REACTIONS (5)
  - Ascites [Recovered/Resolved]
  - Pleural effusion [Unknown]
  - Hypoalbuminaemia [Recovered/Resolved]
  - Haematocrit decreased [Unknown]
  - Oedema [Recovered/Resolved]

NARRATIVE: CASE EVENT DATE: 20250801
